FAERS Safety Report 14880383 (Version 1)
Quarter: 2018Q2

REPORT INFORMATION
  Report Type: Spontaneous
  Country: US (occurrence: US)
  Receive Date: 20180425
  Receipt Date: 20180425
  Transmission Date: 20180711
  Serious: Yes (Life-Threatening, Hospitalization, Other)
  Sender: FDA-Public Use
  Company Number: None

PATIENT
  Age: 31 Year
  Sex: Male
  Weight: 88.2 kg

DRUGS (1)
  1. CYMBALTA [Suspect]
     Active Substance: DULOXETINE HYDROCHLORIDE
     Indication: DEPRESSION
     Dates: start: 20180404, end: 20180423

REACTIONS (11)
  - Suicide attempt [None]
  - Hypertension [None]
  - Irritability [None]
  - Decreased activity [None]
  - Hallucination [None]
  - Fall [None]
  - Nightmare [None]
  - Drug abuse [None]
  - Mood swings [None]
  - Anger [None]
  - Thinking abnormal [None]

NARRATIVE: CASE EVENT DATE: 20180419
